FAERS Safety Report 16411596 (Version 1)
Quarter: 2019Q2

REPORT INFORMATION
  Report Type: Spontaneous
  Country: CH (occurrence: CH)
  Receive Date: 20190610
  Receipt Date: 20190610
  Transmission Date: 20190711
  Serious: Yes (Death, Hospitalization)
  Sender: FDA-Public Use
  Company Number: CH-SA-2019SA156203

PATIENT
  Age: 56 Year
  Sex: Male

DRUGS (1)
  1. BCG FOR IMMUNOTHERAPY [Suspect]
     Active Substance: BACILLUS CALMETTE-GUERIN ANTIGEN, UNSPECIFIED SUBSTRAIN
     Indication: BLADDER TRANSITIONAL CELL CARCINOMA
     Dosage: UNK
     Route: 043

REACTIONS (4)
  - Multiple organ dysfunction syndrome [Fatal]
  - Necrosis [Fatal]
  - Sepsis [Fatal]
  - Mycobacterium tuberculosis complex test positive [Fatal]
